FAERS Safety Report 19177938 (Version 2)
Quarter: 2021Q2

REPORT INFORMATION
  Report Type: Spontaneous
  Country: GB (occurrence: GB)
  Receive Date: 20210426
  Receipt Date: 20210630
  Transmission Date: 20210717
  Serious: Yes (Other)
  Sender: FDA-Public Use
  Company Number: GB-SUN PHARMACEUTICAL INDUSTRIES LTD-2021RR-292734

PATIENT
  Age: 26 Year
  Sex: Female

DRUGS (2)
  1. PREGABALIN. [Suspect]
     Active Substance: PREGABALIN
     Indication: PRODUCT USED FOR UNKNOWN INDICATION
     Dosage: UNK
     Route: 065
  2. ADRENALINE [Suspect]
     Active Substance: EPINEPHRINE
     Indication: RESUSCITATION
     Dosage: 2 MILLIGRAM, UNK
     Route: 065

REACTIONS (6)
  - Reperfusion injury [Unknown]
  - Compartment syndrome [Unknown]
  - Peripheral ischaemia [Unknown]
  - Cardiac arrest [Unknown]
  - Overdose [Unknown]
  - Product administration error [Unknown]
